FAERS Safety Report 11154773 (Version 1)
Quarter: 2015Q2

REPORT INFORMATION
  Report Type: Spontaneous
  Country: GB (occurrence: None)
  Receive Date: 20150529
  Receipt Date: 20150529
  Transmission Date: 20150821
  Serious: Yes (Hospitalization)
  Sender: FDA-Public Use
  Company Number: GB-ALSI-201500103

PATIENT
  Age: 27 Year
  Sex: Male

DRUGS (1)
  1. NITROUS OXIDE. [Suspect]
     Active Substance: NITROUS OXIDE
     Indication: ANALGESIC THERAPY
     Route: 055

REACTIONS (6)
  - Myelopathy [None]
  - Vitamin B12 deficiency [None]
  - Drug abuse [None]
  - Wheelchair user [None]
  - Paraparesis [None]
  - Muscle spasms [None]
